FAERS Safety Report 21389391 (Version 2)
Quarter: 2022Q4

REPORT INFORMATION
  Report Type: Spontaneous
  Country: AU (occurrence: None)
  Receive Date: 20220929
  Receipt Date: 20221013
  Transmission Date: 20230113
  Serious: Yes (Other)
  Sender: FDA-Public Use
  Company Number: AU-ROCHE-3187141

PATIENT
  Age: 52 Year
  Sex: Female

DRUGS (9)
  1. RITUXIMAB [Suspect]
     Active Substance: RITUXIMAB
     Indication: Product used for unknown indication
     Route: 065
  2. CYCLOPHOSPHAMIDE [Suspect]
     Active Substance: CYCLOPHOSPHAMIDE
     Indication: Product used for unknown indication
     Route: 065
  3. DOXORUBICIN [Suspect]
     Active Substance: DOXORUBICIN
     Indication: Product used for unknown indication
     Route: 065
  4. PREDNISOLONE [Suspect]
     Active Substance: PREDNISOLONE
     Indication: Product used for unknown indication
     Route: 065
  5. VINCRISTINE [Suspect]
     Active Substance: VINCRISTINE
     Indication: Product used for unknown indication
     Route: 065
  6. DEXAMETHASONE [Suspect]
     Active Substance: DEXAMETHASONE
     Indication: Product used for unknown indication
     Route: 065
  7. VINBLASTINE [Suspect]
     Active Substance: VINBLASTINE
     Indication: Product used for unknown indication
     Route: 065
  8. GAZYVA [Concomitant]
     Active Substance: OBINUTUZUMAB
     Dosage: CYCLE 1: PRETREATMENT DOSE 1000MG GAZYVA (D1). D8 2.5MG GLOFIT, D15 10MG GLOFIT. CYCLE 2-12,?D1 GLOF
     Route: 042
  9. GLOFITAMAB [Concomitant]
     Active Substance: GLOFITAMAB
     Dosage: CYCLE 1: PRETREATMENT DOSE 1000MG GAZYVA (D1). D8 2.5MG GLOFIT, D15 10MG GLOFIT. CYCLE 2-12,?D1 GLOF
     Route: 042

REACTIONS (8)
  - Diffuse large B-cell lymphoma recurrent [Unknown]
  - Pulmonary embolism [Unknown]
  - Pleural effusion [Unknown]
  - Pleural disorder [Unknown]
  - Gastrointestinal disorder [Unknown]
  - Deep vein thrombosis [Unknown]
  - Infection [Unknown]
  - Disease progression [Unknown]
